FAERS Safety Report 7284417-6 (Version None)
Quarter: 2011Q1

REPORT INFORMATION
  Report Type: 
  Country: None (occurrence: None)
  Receive Date: 20110209
  Receipt Date: 20110119
  Transmission Date: 20110831
  Serious: Yes (Other)
  Sender: FDA-Public Use
  Company Number: PHHY2011BR05026

PATIENT
  Age: 59 Year
  Sex: Female
  Weight: 74 kg

DRUGS (2)
  1. ZOMETA [Suspect]
     Indication: BONE DECALCIFICATION
     Dosage: 4 MG, EVERY 6 MONTHS
     Route: 042
     Dates: start: 20080301
  2. ANASTROZOLE [Concomitant]

REACTIONS (7)
  - FALL [None]
  - TOOTH INFECTION [None]
  - BRUXISM [None]
  - ANKLE FRACTURE [None]
  - TOOTH DISORDER [None]
  - NERVOUSNESS [None]
  - TOOTH INJURY [None]
